FAERS Safety Report 4919302-5 (Version None)
Quarter: 2006Q1

REPORT INFORMATION
  Report Type: 
  Country: None (occurrence: None)
  Receive Date: 20060113
  Receipt Date: 20051207
  Transmission Date: 20060701
  Serious: No
  Sender: FDA-Public Use
  Company Number: 2005SP004312

PATIENT
  Age: 42 Year
  Sex: Female

DRUGS (3)
  1. LUNESTA [Suspect]
     Dosage: 2 MG; ORAL
     Route: 048
     Dates: start: 20051201, end: 20051206
  2. SYNTHROID [Concomitant]
  3. MULTIVITAMIN [Concomitant]

REACTIONS (2)
  - ABNORMAL DREAMS [None]
  - MIDDLE INSOMNIA [None]
